FAERS Safety Report 9009116 (Version 1)
Quarter: 2013Q1

REPORT INFORMATION
  Report Type: Spontaneous
  Country: US (occurrence: US)
  Receive Date: 20130111
  Receipt Date: 20130111
  Transmission Date: 20140127
  Serious: No
  Sender: FDA-Public Use
  Company Number: US-GLAXOSMITHKLINE-A0999185A

PATIENT
  Age: 73 Year
  Sex: Male

DRUGS (1)
  1. JALYN [Suspect]
     Indication: DYSURIA
     Route: 048
     Dates: start: 201209, end: 201209

REACTIONS (2)
  - Headache [Recovered/Resolved]
  - Toothache [Unknown]
